FAERS Safety Report 7997267-X (Version None)
Quarter: 2011Q4

REPORT INFORMATION
  Report Type: 
  Country: None (occurrence: None)
  Receive Date: 20111123
  Receipt Date: 20110914
  Transmission Date: 20120403
  Serious: No
  Sender: FDA-Public Use
  Company Number: 337134

PATIENT
  Age: 64 Year
  Sex: Female

DRUGS (2)
  1. VICTOZA [Suspect]
     Indication: TYPE 2 DIABETES MELLITUS
  2. ANTIVERT [Suspect]
     Indication: VERTIGO

REACTIONS (1)
  - DIZZINESS [None]
